FAERS Safety Report 5240778-0 (Version None)
Quarter: 2007Q1

REPORT INFORMATION
  Report Type: 
  Country: None (occurrence: None)
  Receive Date: 20070219
  Receipt Date: 20070206
  Transmission Date: 20070707
  Serious: Yes (Hospitalization, Other)
  Sender: FDA-Public Use
  Company Number: US-ELI_LILLY_AND_COMPANY-US200702001708

PATIENT
  Sex: Female

DRUGS (3)
  1. CYMBALTA [Suspect]
     Dosage: 90 MG, UNK
     Dates: end: 20070101
  2. CYMBALTA [Suspect]
     Dosage: 90 MG, UNK
     Dates: start: 20070101
  3. COUMADIN [Concomitant]

REACTIONS (2)
  - COAGULOPATHY [None]
  - GASTRIC BYPASS [None]
